FAERS Safety Report 7971166-1 (Version None)
Quarter: 2011Q4

REPORT INFORMATION
  Report Type: 
  Country: None (occurrence: None)
  Receive Date: 20111212
  Receipt Date: 20111205
  Transmission Date: 20120403
  Serious: Yes (Other)
  Sender: FDA-Public Use
  Company Number: PHHY2011BR106016

PATIENT
  Age: 48 Year
  Sex: Female
  Weight: 50 kg

DRUGS (6)
  1. ANAFRANIL [Suspect]
     Dosage: 25 MG, DAILY
     Route: 048
  2. SIMVASTATIN [Concomitant]
     Indication: HYPERCHOLESTEROLAEMIA
     Dosage: 40 MG, PER DAY IN THE MORNING
  3. LEVOTHYROXINE SODIUM [Concomitant]
     Indication: HYPOTHYROIDISM
     Dosage: 100MCG/DIA
  4. ANAFRANIL [Suspect]
     Indication: BIPOLAR I DISORDER
     Dosage: 175 MG DAILY
     Route: 048
  5. VISKEN [Concomitant]
     Indication: HYPERTENSION
     Dosage: 5 MG, DAILY MORNING
  6. CLONAZEPAM [Concomitant]
     Dosage: UNK UKN, UNK

REACTIONS (5)
  - BLOOD CORTISOL DECREASED [None]
  - BLOOD CORTICOTROPHIN DECREASED [None]
  - NAUSEA [None]
  - DECREASED APPETITE [None]
  - WEIGHT INCREASED [None]
